FAERS Safety Report 9536255 (Version 1)
Quarter: 2013Q2

REPORT INFORMATION
  Report Type: Spontaneous
  Country: US (occurrence: None)
  Receive Date: 20130517
  Receipt Date: 20130517
  Transmission Date: 20140414
  Serious: Yes (Other)
  Sender: FDA-Public Use
  Company Number: 1000044103

PATIENT
  Age: 42 Year
  Sex: Female

DRUGS (1)
  1. VIIBRYD (VILAZODONE HYDROCHLORIDE) (TABLETS) [Suspect]
     Dosage: 20MG (20MG, 1 IN 1D) ORAL
     Route: 048
     Dates: start: 20130220, end: 2013

REACTIONS (1)
  - Nausea [None]
